FAERS Safety Report 19013218 (Version 1)
Quarter: 2021Q1

REPORT INFORMATION
  Report Type: Spontaneous
  Country: US (occurrence: US)
  Receive Date: 20210316
  Receipt Date: 20210316
  Transmission Date: 20210420
  Serious: Yes (Other)
  Sender: FDA-Public Use
  Company Number: US-AMNEAL PHARMACEUTICALS-2021-AMRX-00447

PATIENT
  Age: 18 Year
  Sex: Female

DRUGS (1)
  1. ISOTRETINOIN. [Suspect]
     Active Substance: ISOTRETINOIN
     Indication: ACNE
     Dosage: 1 CAPSULES, 2X/DAY
     Route: 048
     Dates: start: 20200905, end: 20210209

REACTIONS (2)
  - Maternal exposure during pregnancy [Unknown]
  - Abortion induced [Unknown]

NARRATIVE: CASE EVENT DATE: 2021
